FAERS Safety Report 6017146-7 (Version None)
Quarter: 2008Q4

REPORT INFORMATION
  Report Type: 
  Country: None (occurrence: None)
  Receive Date: 20081223
  Receipt Date: 20081212
  Transmission Date: 20090506
  Serious: Yes (Hospitalization)
  Sender: FDA-Public Use
  Company Number: JP-BAYER-200813095BYL

PATIENT
  Age: 76 Year
  Sex: Female
  Weight: 39 kg

DRUGS (11)
  1. NEXAVAR [Suspect]
     Indication: RENAL CELL CARCINOMA STAGE I
     Dosage: UNIT DOSE: 200 MG
     Route: 048
     Dates: start: 20080322, end: 20080420
  2. NEXAVAR [Suspect]
     Dosage: UNIT DOSE: 200 MG
     Route: 048
     Dates: start: 20080421, end: 20080624
  3. CALSLOT [Concomitant]
     Route: 048
  4. FERO-GRADUMET [Concomitant]
     Indication: DRUG USE FOR UNKNOWN INDICATION
     Route: 048
     Dates: start: 20060919
  5. JUZEN-TAIHO-TO [Concomitant]
     Route: 048
     Dates: start: 20041221
  6. EPOGIN INJ. 6000 [Concomitant]
     Indication: DRUG USE FOR UNKNOWN INDICATION
     Route: 058
     Dates: start: 20080327
  7. LASIX [Concomitant]
     Indication: DRUG USE FOR UNKNOWN INDICATION
     Route: 048
     Dates: start: 20080318
  8. LEVOTHYROXINE SODIUM [Concomitant]
     Indication: DRUG USE FOR UNKNOWN INDICATION
     Route: 048
     Dates: start: 20080317
  9. BIOFERMIN [Concomitant]
     Route: 048
     Dates: start: 20080407
  10. URINORM [Concomitant]
     Route: 048
  11. SODIUM BICARBONATE [Concomitant]
     Route: 048
     Dates: start: 20080421

REACTIONS (7)
  - ASPARTATE AMINOTRANSFERASE INCREASED [None]
  - DIARRHOEA [None]
  - DYSGEUSIA [None]
  - FATIGUE [None]
  - HYPERURICAEMIA [None]
  - LYMPHOCYTE COUNT DECREASED [None]
  - MALAISE [None]
